FAERS Safety Report 12838167 (Version 2)
Quarter: 2016Q4

REPORT INFORMATION
  Report Type: Report from Study
  Country: BR (occurrence: BR)
  Receive Date: 20161012
  Receipt Date: 20161013
  Transmission Date: 20170207
  Serious: Yes (Other)
  Sender: FDA-Public Use
  Company Number: PHHY2016BR137907

PATIENT
  Sex: Female

DRUGS (1)
  1. DIOVAN AMLO FIX [Suspect]
     Active Substance: AMLODIPINE\VALSARTAN
     Indication: HYPERTENSION
     Dosage: 1 DF (AMLODIPINE 5MG, VALSARTAN 160 MG), QD IN THE MORNING
     Route: 048
     Dates: start: 20160905

REACTIONS (7)
  - Vertigo [Recovered/Resolved]
  - Therapeutic response decreased [Unknown]
  - Drug prescribing error [Unknown]
  - Fall [Recovering/Resolving]
  - Dysstasia [Unknown]
  - Hypertension [Recovering/Resolving]
  - Diabetes mellitus [Unknown]
